FAERS Safety Report 12199448 (Version 1)
Quarter: 2016Q1

REPORT INFORMATION
  Report Type: Spontaneous
  Country: US (occurrence: US)
  Receive Date: 20160322
  Receipt Date: 20160322
  Transmission Date: 20160526
  Serious: No
  Sender: FDA-Public Use
  Company Number: US-PFIZER INC-2016167945

PATIENT
  Sex: Male

DRUGS (2)
  1. SUTENT [Suspect]
     Active Substance: SUNITINIB MALATE
     Indication: RENAL CELL CARCINOMA
     Dosage: 50 MG, CYCLIC, 4 TO 2 SCHEDULE
     Route: 048
     Dates: start: 201601
  2. SUTENT [Suspect]
     Active Substance: SUNITINIB MALATE
     Dosage: 50 MG, CYCLIC, ON A 2 WEEKS ON, 1 WEEK OFF
     Route: 048

REACTIONS (2)
  - Feeling abnormal [Recovered/Resolved]
  - Fatigue [Recovered/Resolved]
